FAERS Safety Report 4476909-X (Version None)
Quarter: 2004Q4

REPORT INFORMATION
  Report Type: 
  Country: None (occurrence: None)
  Receive Date: 20041012
  Receipt Date: 20041005
  Transmission Date: 20050328
  Serious: Yes (Other)
  Sender: FDA-Public Use
  Company Number: 163-20785-04100148

PATIENT
  Sex: Male

DRUGS (3)
  1. THALOMID [Suspect]
     Indication: PROSTATE CANCER
     Dosage: 200 MG, QD, ORAL
     Route: 048
     Dates: end: 20010910
  2. DOCETAXEL (DOCETAXEL) [Suspect]
     Indication: PROSTATE CANCER
     Dosage: 30 MG/M2, OVER 30 MIN GW ON DAY 2 FOR 3 WK Q28D, INTRAVENOUS
     Route: 042
     Dates: end: 20010910
  3. DECADRON [Suspect]
     Indication: PROSTATE CANCER
     Dosage: 8 MG, X1 ON DAY 1, BID ON DAY 2 FOR 3 WK Q28D, ORAL
     Route: 048
     Dates: end: 20010910

REACTIONS (28)
  - AGITATION [None]
  - AMNESIA [None]
  - ANXIETY [None]
  - APHONIA [None]
  - ASTHENIA [None]
  - BONE PAIN [None]
  - CHEST PAIN [None]
  - CONSTIPATION [None]
  - DIARRHOEA [None]
  - DISEASE PROGRESSION [None]
  - DRY MOUTH [None]
  - DYSPNOEA [None]
  - FATIGUE [None]
  - FLUSHING [None]
  - HOARSENESS [None]
  - HYPOXIA [None]
  - INJECTION SITE REACTION [None]
  - INSOMNIA [None]
  - LARYNGITIS [None]
  - LETHARGY [None]
  - MALAISE [None]
  - MOOD ALTERED [None]
  - NON-CARDIAC CHEST PAIN [None]
  - OEDEMA [None]
  - PERICARDIAL EFFUSION [None]
  - PERICARDITIS [None]
  - PERIPHERAL SENSORY NEUROPATHY [None]
  - STRIDOR [None]
